FAERS Safety Report 23024125 (Version 3)
Quarter: 2023Q4

REPORT INFORMATION
  Report Type: Report from Study
  Country: NL (occurrence: NL)
  Receive Date: 20231004
  Receipt Date: 20231010
  Transmission Date: 20240109
  Serious: Yes (Hospitalization, Other)
  Sender: FDA-Public Use
  Company Number: NL-ABBVIE-5430997

PATIENT
  Sex: Male

DRUGS (12)
  1. CARBIDOPA\LEVODOPA [Suspect]
     Active Substance: CARBIDOPA\LEVODOPA
     Indication: Parkinson^s disease
     Dosage: LAST ADMINISTRATION DATE: APR 2019
     Route: 050
     Dates: start: 20190429
  2. CARBIDOPA\LEVODOPA [Suspect]
     Active Substance: CARBIDOPA\LEVODOPA
     Dosage: MD: 11.5 ML, CD: 2.3 ML/H, ED: 2.0 ML?DURATION TEXT: REMAINS AT 16 HOURS
     Route: 050
  3. CARBIDOPA\LEVODOPA [Suspect]
     Active Substance: CARBIDOPA\LEVODOPA
     Route: 050
  4. CARBIDOPA\LEVODOPA [Suspect]
     Active Substance: CARBIDOPA\LEVODOPA
     Dosage: MD: 11.5 ML, CD: 2.1 ML/H, ED: 2.0 ML?DURATION TEXT: REMAINS AT 16 HOURS
     Route: 050
  5. CARBIDOPA\LEVODOPA [Suspect]
     Active Substance: CARBIDOPA\LEVODOPA
     Dosage: MD: 11.5 ML, CD: 2.2 ML/H, ED: 2.0 ML?DURATION TEXT: REMAINS AT 16 HOURS
     Route: 050
  6. CARBIDOPA\LEVODOPA [Concomitant]
     Active Substance: CARBIDOPA\LEVODOPA
     Indication: Parkinson^s disease
  7. POLYETHYLENE GLYCOLS [Concomitant]
     Active Substance: POLYETHYLENE GLYCOLS
     Indication: Bowel movement irregularity
  8. RIVOTRIL [Concomitant]
     Active Substance: CLONAZEPAM
     Indication: Product used for unknown indication
  9. VITAMIN D [Concomitant]
     Active Substance: VITAMIN D NOS
     Indication: Product used for unknown indication
  10. QUETIAPINE [Concomitant]
     Active Substance: QUETIAPINE
     Indication: Hallucination
  11. FOLACID [Concomitant]
     Indication: Product used for unknown indication
  12. CLOZAPINE [Concomitant]
     Active Substance: CLOZAPINE
     Indication: Hallucination

REACTIONS (5)
  - Surgery [Unknown]
  - Abdominal pain upper [Not Recovered/Not Resolved]
  - Device dislocation [Not Recovered/Not Resolved]
  - Thrombosis [Recovering/Resolving]
  - Perforation [Recovering/Resolving]
